FAERS Safety Report 7072311-5 (Version None)
Quarter: 2010Q4

REPORT INFORMATION
  Report Type: 
  Country: None (occurrence: None)
  Receive Date: 20101020
  Receipt Date: 20101004
  Transmission Date: 20110411
  Serious: Yes (Hospitalization)
  Sender: FDA-Public Use
  Company Number: ACO_02598_2010

PATIENT
  Age: 51 Year
  Sex: Female
  Weight: 70.3075 kg

DRUGS (4)
  1. AMPYRA [Suspect]
     Indication: GAIT DISTURBANCE
     Dosage: 10 MG BID ORAL
     Route: 048
     Dates: start: 20100414, end: 20100611
  2. LEXAPRO [Concomitant]
  3. ESTRADIOL [Concomitant]
  4. OXYBUTYNIN [Concomitant]

REACTIONS (1)
  - DYSPEPSIA [None]
